FAERS Safety Report 24645289 (Version 1)
Quarter: 2024Q4

REPORT INFORMATION
  Report Type: Spontaneous
  Country: IL (occurrence: IL)
  Receive Date: 20241121
  Receipt Date: 20241121
  Transmission Date: 20250114
  Serious: Yes (Death)
  Sender: CHEPLAPHARM
  Company Number: IL-CHEPLA-2024014623

PATIENT
  Age: 35 Week
  Sex: Male

DRUGS (1)
  1. GANCICLOVIR [Suspect]
     Active Substance: GANCICLOVIR
     Indication: Antiviral prophylaxis
     Dosage: GANCICLOVIR WAS INITIATED ON DAY ONE

REACTIONS (3)
  - Necrotising colitis [Fatal]
  - Sepsis [Fatal]
  - Off label use [Recovered/Resolved]
